FAERS Safety Report 8318810-7 (Version None)
Quarter: 2012Q2

REPORT INFORMATION
  Report Type: 
  Country: None (occurrence: None)
  Receive Date: 20120427
  Receipt Date: 20120423
  Transmission Date: 20120825
  Serious: Yes (Life-Threatening, Hospitalization, Disabling, Other)
  Sender: FDA-Public Use
  Company Number: US-BAYER-2012-040402

PATIENT
  Age: 56 Year
  Sex: Male

DRUGS (6)
  1. GADOLINIUM IN UNSPECIFIED DRUG [Suspect]
     Indication: HEPATIC CIRRHOSIS
  2. OMNISCAN [Suspect]
     Indication: HEPATIC CIRRHOSIS
  3. GADOLINIUM IN UNSPECIFIED DRUG [Suspect]
     Indication: NUCLEAR MAGNETIC RESONANCE IMAGING
     Dosage: UNK
     Dates: start: 20090224, end: 20090224
  4. OMNISCAN [Suspect]
     Indication: NUCLEAR MAGNETIC RESONANCE IMAGING
     Dosage: 20 MG, ONCE
     Dates: start: 20090224, end: 20090224
  5. SODIUM CHLORIDE [Concomitant]
     Indication: HEPATIC CIRRHOSIS
  6. SODIUM CHLORIDE [Concomitant]
     Indication: NUCLEAR MAGNETIC RESONANCE IMAGING
     Dosage: 40 MG, ONCE
     Dates: start: 20090224, end: 20090224

REACTIONS (14)
  - URINARY RETENTION [None]
  - MALAISE [None]
  - INFECTION [None]
  - APHAGIA [None]
  - ERYTHEMA [None]
  - JOINT SWELLING [None]
  - SKIN INDURATION [None]
  - WALKING AID USER [None]
  - PHARYNGITIS STREPTOCOCCAL [None]
  - FINGER DEFORMITY [None]
  - SKIN DISCOLOURATION [None]
  - OEDEMA PERIPHERAL [None]
  - ARTHRALGIA [None]
  - ABASIA [None]
